FAERS Safety Report 23464551 (Version 2)
Quarter: 2024Q1

REPORT INFORMATION
  Report Type: Spontaneous
  Country: ES (occurrence: ES)
  Receive Date: 20240201
  Receipt Date: 20240301
  Transmission Date: 20240410
  Serious: Yes (Life-Threatening, Other)
  Sender: FDA-Public Use
  Company Number: ES-SANDOZ-SDZ2023ES035663

PATIENT
  Age: 34 Year
  Sex: Male

DRUGS (18)
  1. CYCLOPHOSPHAMIDE [Suspect]
     Active Substance: CYCLOPHOSPHAMIDE
     Dosage: UNK (250MG/M2/DAY) DAY 1-5 EVERY 3 WEEKS
     Route: 065
     Dates: start: 202103
  2. CYCLOPHOSPHAMIDE [Suspect]
     Active Substance: CYCLOPHOSPHAMIDE
     Dosage: UNK 25 MG/M2 (D1-28)  EVERY 28 DAYS
     Route: 048
     Dates: start: 20211228, end: 20220313
  3. CYCLOPHOSPHAMIDE [Suspect]
     Active Substance: CYCLOPHOSPHAMIDE
     Indication: Desmoplastic small round cell tumour
     Dosage: UNK DAY 1-2 3 WEEKS
     Route: 065
     Dates: start: 20180808
  4. DOCETAXEL [Suspect]
     Active Substance: DOCETAXEL\DOCETAXEL ANHYDROUS
     Indication: Desmoplastic small round cell tumour
     Dosage: UNK (DAY 8 AND 21)
     Route: 065
     Dates: start: 202107, end: 202112
  5. DOXORUBICIN [Suspect]
     Active Substance: DOXORUBICIN
     Indication: Desmoplastic small round cell tumour
     Dosage: UNK DAY 1-3
     Route: 065
     Dates: start: 20180808
  6. ETOPOSIDE [Suspect]
     Active Substance: ETOPOSIDE
     Indication: Desmoplastic small round cell tumour
     Dosage: UNK DAY 1-5 EVERY 3 WEEKS
     Route: 065
     Dates: start: 201902
  7. GEMCITABINE [Suspect]
     Active Substance: GEMCITABINE
     Indication: Desmoplastic small round cell tumour
     Dosage: UNK (DAY 1 AND 8)
     Route: 065
     Dates: start: 202107, end: 202112
  8. IRINOTECAN [Suspect]
     Active Substance: IRINOTECAN
     Indication: Desmoplastic small round cell tumour
     Dosage: UNK DAY 1-5
     Route: 065
     Dates: start: 201904
  9. IFOSFAMIDE [Suspect]
     Active Substance: IFOSFAMIDE
     Indication: Desmoplastic small round cell tumour
     Dosage: UNK
     Route: 065
     Dates: start: 201902
  10. IFOSFAMIDE [Suspect]
     Active Substance: IFOSFAMIDE
     Dosage: UNK (HIGH DOSE)
     Route: 065
     Dates: start: 2022
  11. PAZOPANIB [Suspect]
     Active Substance: PAZOPANIB
     Indication: Desmoplastic small round cell tumour
     Dosage: 800 MG, QD
     Route: 065
  12. TEMOZOLOMIDE [Suspect]
     Active Substance: TEMOZOLOMIDE
     Indication: Desmoplastic small round cell tumour
     Dosage: UNK DAY 1-5 (EVERY 21 DAYS)
     Route: 065
     Dates: start: 201904
  13. TOPOTECAN [Suspect]
     Active Substance: TOPOTECAN HYDROCHLORIDE
     Indication: Desmoplastic small round cell tumour
     Dosage: UNK PER DAY (D 1-5)
     Route: 065
     Dates: start: 202103
  14. TRABECTEDIN [Suspect]
     Active Substance: TRABECTEDIN
     Indication: Desmoplastic small round cell tumour
     Dosage: UNK
     Route: 065
     Dates: start: 201907
  15. TRABECTEDIN [Suspect]
     Active Substance: TRABECTEDIN
     Dosage: UNK (1 MG/M2)
     Route: 065
  16. TRABECTEDIN [Suspect]
     Active Substance: TRABECTEDIN
     Dosage: UNK (1.2MG/M2)
     Route: 065
  17. VINCRISTINE [Suspect]
     Active Substance: VINCRISTINE
     Indication: Desmoplastic small round cell tumour
     Dosage: UNK DAY 1-3
     Route: 065
     Dates: start: 20180808
  18. VINORELBINE [Suspect]
     Active Substance: VINORELBINE TARTRATE
     Indication: Desmoplastic small round cell tumour
     Dosage: UNK (D1-28)  EVERY 28 DAYS
     Route: 065
     Dates: start: 20211228, end: 20220313

REACTIONS (7)
  - Febrile neutropenia [Unknown]
  - Thrombocytopenia [Unknown]
  - Thrombocytopenia [Unknown]
  - Neoplasm progression [Unknown]
  - Desmoplastic small round cell tumour [Unknown]
  - Product use in unapproved indication [Unknown]
  - Off label use [Unknown]
